FAERS Safety Report 4339210-0 (Version None)
Quarter: 2004Q2

REPORT INFORMATION
  Report Type: 
  Country: None (occurrence: None)
  Receive Date: 20040415
  Receipt Date: 20040406
  Transmission Date: 20050107
  Serious: Yes (Other)
  Sender: FDA-Public Use
  Company Number: PHEH2004US03957

PATIENT
  Sex: Female

DRUGS (3)
  1. ZELNORM [Suspect]
     Route: 048
  2. DIGOXIN [Suspect]
     Indication: ARRHYTHMIA
     Dosage: ONE TABLET/DAY
     Route: 048
  3. METOPROLOL [Suspect]
     Indication: ARRHYTHMIA
     Dosage: TWO TABLETS/DAY

REACTIONS (3)
  - ARRHYTHMIA [None]
  - CONDITION AGGRAVATED [None]
  - DRUG INTERACTION INHIBITION [None]
